FAERS Safety Report 6180632-3 (Version None)
Quarter: 2009Q2

REPORT INFORMATION
  Report Type: 
  Country: None (occurrence: None)
  Receive Date: 20090506
  Receipt Date: 20090504
  Transmission Date: 20091009
  Serious: Yes (Death)
  Sender: FDA-Public Use
  Company Number: PHEH2008US11379

PATIENT
  Sex: Male
  Weight: 80.272 kg

DRUGS (3)
  1. EXJADE [Suspect]
     Indication: MYELODYSPLASTIC SYNDROME
     Dosage: 25 MG/KG/DAY
     Route: 048
     Dates: start: 20071119, end: 20081205
  2. EXJADE [Suspect]
     Indication: IRON OVERLOAD
  3. ANTIHYPERTENSIVES [Concomitant]

REACTIONS (1)
  - SUDDEN DEATH [None]
